FAERS Safety Report 7251460-2 (Version None)
Quarter: 2011Q1

REPORT INFORMATION
  Report Type: 
  Country: None (occurrence: None)
  Receive Date: 20110128
  Receipt Date: 20110117
  Transmission Date: 20110831
  Serious: Yes (Hospitalization, Other)
  Sender: FDA-Public Use
  Company Number: PHHY2011BR04342

PATIENT
  Sex: Female
  Weight: 63 kg

DRUGS (2)
  1. DIOVAN HCT [Suspect]
     Indication: HYPERTENSION
     Dosage: 1 DF (160/12.5 MG), UNK
     Route: 048
  2. DIOVAN [Suspect]
     Dosage: 80 MG, UNK

REACTIONS (1)
  - BREAST CANCER [None]
